FAERS Safety Report 24218259 (Version 1)
Quarter: 2024Q3

REPORT INFORMATION
  Report Type: Spontaneous
  Country: US (occurrence: US)
  Receive Date: 20240816
  Receipt Date: 20240816
  Transmission Date: 20241017
  Serious: Yes (Other)
  Sender: JOHNSON AND JOHNSON
  Company Number: US-JNJFOC-20240818691

PATIENT
  Age: 89 Year
  Sex: Male

DRUGS (1)
  1. TECVAYLI [Suspect]
     Active Substance: TECLISTAMAB-CQYV
     Indication: Product used for unknown indication
     Dosage: ONCE A WEEK, THEN ITS EVERY OTHER WEEK
     Route: 065
     Dates: start: 202403

REACTIONS (5)
  - Plasma cell myeloma [Unknown]
  - Vision blurred [Unknown]
  - Dry eye [Unknown]
  - Fatigue [Unknown]
  - Muscular weakness [Unknown]

NARRATIVE: CASE EVENT DATE: 20240101
